FAERS Safety Report 15161036 (Version 2)
Quarter: 2019Q1

REPORT INFORMATION
  Report Type: Report from Study
  Country: US (occurrence: US)
  Receive Date: 20180718
  Receipt Date: 20190227
  Transmission Date: 20190417
  Serious: Yes (Other)
  Sender: FDA-Public Use
  Company Number: US-JAZZ-2018-US-004659

PATIENT
  Age: 39 Year
  Sex: Female

DRUGS (3)
  1. XYREM [Suspect]
     Active Substance: SODIUM OXYBATE
     Indication: CATAPLEXY
     Dosage: 3 G, BID
     Route: 048
     Dates: start: 20180403, end: 2019
  2. XYREM [Suspect]
     Active Substance: SODIUM OXYBATE
     Indication: NARCOLEPSY
     Dosage: 2.25 G, BID
     Route: 048
     Dates: start: 20180317, end: 20180402
  3. XYREM [Suspect]
     Active Substance: SODIUM OXYBATE
     Dosage: 4.5 G, BID
     Route: 048
     Dates: start: 201902

REACTIONS (14)
  - Euphoric mood [Unknown]
  - Asthenia [Unknown]
  - Pre-existing condition improved [Unknown]
  - Lip swelling [Not Recovered/Not Resolved]
  - Hypoaesthesia [Unknown]
  - Weight decreased [Unknown]
  - Oropharyngeal pain [Unknown]
  - Insomnia [Unknown]
  - Headache [Unknown]
  - Feeling drunk [Recovered/Resolved]
  - Somnolence [Unknown]
  - Therapeutic response unexpected [Unknown]
  - Muscle twitching [Unknown]
  - Fatigue [Unknown]

NARRATIVE: CASE EVENT DATE: 201803
